FAERS Safety Report 19947551 (Version 2)
Quarter: 2022Q1

REPORT INFORMATION
  Report Type: Report from Study
  Country: US (occurrence: US)
  Receive Date: 20211012
  Receipt Date: 20220120
  Transmission Date: 20220423
  Serious: Yes (Other)
  Sender: FDA-Public Use
  Company Number: US-TAKEDA-2021TUS003214

PATIENT
  Sex: Male

DRUGS (2)
  1. VELAGLUCERASE ALFA [Suspect]
     Active Substance: VELAGLUCERASE ALFA
     Indication: Gaucher^s disease
     Dosage: 8000 INTERNATIONAL UNIT, Q4WEEKS
     Route: 042
     Dates: start: 20200827
  2. VELAGLUCERASE ALFA [Suspect]
     Active Substance: VELAGLUCERASE ALFA
     Dosage: 8000 INTERNATIONAL UNIT, Q4WEEKS
     Route: 042
     Dates: start: 202008

REACTIONS (2)
  - Hand fracture [Unknown]
  - Product dose omission issue [Unknown]
